FAERS Safety Report 24397619 (Version 1)
Quarter: 2024Q4

REPORT INFORMATION
  Report Type: Spontaneous
  Country: CN (occurrence: CN)
  Receive Date: 20241004
  Receipt Date: 20241004
  Transmission Date: 20250114
  Serious: Yes (Hospitalization)
  Sender: ALEXION PHARMACEUTICALS
  Company Number: CN-AstraZeneca-CH-00717491A

PATIENT

DRUGS (4)
  1. TAGRISSO [Suspect]
     Active Substance: OSIMERTINIB
     Dosage: UNK
  2. TAGRISSO [Suspect]
     Active Substance: OSIMERTINIB
     Dosage: UNK
  3. TAGRISSO [Suspect]
     Active Substance: OSIMERTINIB
     Dosage: UNK
  4. TAGRISSO [Suspect]
     Active Substance: OSIMERTINIB
     Dosage: UNK

REACTIONS (1)
  - Mental status changes [Unknown]
